FAERS Safety Report 8138412-5 (Version None)
Quarter: 2012Q1

REPORT INFORMATION
  Report Type: 
  Country: None (occurrence: None)
  Receive Date: 20120215
  Receipt Date: 20120203
  Transmission Date: 20120608
  Serious: Yes (Other)
  Sender: FDA-Public Use
  Company Number: US-SANOFI-AVENTIS-2012SA007922

PATIENT
  Sex: Male

DRUGS (2)
  1. PLAVIX [Suspect]
  2. PLAVIX [Suspect]

REACTIONS (4)
  - TRANSIENT ISCHAEMIC ATTACK [None]
  - OVERDOSE [None]
  - OFF LABEL USE [None]
  - PLATELET AGGREGATION ABNORMAL [None]
